FAERS Safety Report 8533203-5 (Version None)
Quarter: 2012Q3

REPORT INFORMATION
  Report Type: 
  Country: None (occurrence: None)
  Receive Date: 20120724
  Receipt Date: 20120719
  Transmission Date: 20120928
  Serious: Yes (Death, Hospitalization)
  Sender: FDA-Public Use
  Company Number: US-CELGENEUS-163-21880-12062041

PATIENT
  Sex: Female

DRUGS (10)
  1. TARCEVA [Concomitant]
     Dosage: 150 MILLIGRAM
     Route: 048
  2. REVLIMID [Suspect]
     Dosage: 25 MILLIGRAM
     Route: 048
     Dates: start: 20120601, end: 20120101
  3. DEXAMETHASONE [Concomitant]
     Dosage: 1 MILLIGRAM
     Route: 048
  4. PEPCID AC [Concomitant]
     Dosage: 10 MILLIGRAM
     Route: 048
  5. ASPIRIN [Concomitant]
     Dosage: 81 MILLIGRAM
     Route: 048
  6. CO Q 10 [Concomitant]
     Dosage: 100 MILLIGRAM
     Route: 048
  7. MULTI-VITAMINS [Concomitant]
     Route: 048
  8. GABAPENTIN [Concomitant]
     Dosage: 100 MILLIGRAM
     Route: 048
  9. REVLIMID [Suspect]
     Indication: MULTIPLE MYELOMA
     Dosage: 10 MILLIGRAM
     Route: 048
     Dates: start: 20111001
  10. SYNTHROID [Concomitant]
     Dosage: 88 MICROGRAM
     Route: 048

REACTIONS (2)
  - PLEURAL EFFUSION [None]
  - DEATH [None]
